FAERS Safety Report 19802447 (Version 1)
Quarter: 2021Q3

REPORT INFORMATION
  Report Type: Spontaneous
  Country: US (occurrence: US)
  Receive Date: 20210831
  Receipt Date: 20210831
  Transmission Date: 20211014
  Serious: Yes (Life-Threatening, Disabling)
  Sender: FDA-Public Use
  Company Number: None

PATIENT
  Age: 76 Year
  Sex: Female
  Weight: 60.78 kg

DRUGS (9)
  1. LATANPROST [Concomitant]
     Active Substance: LATANOPROST
  2. STOOL SOFTNER [Concomitant]
  3. LEVOTHYROXINE. [Concomitant]
     Active Substance: LEVOTHYROXINE
  4. CALCIUM [Concomitant]
     Active Substance: CALCIUM
  5. TYLENOL [Concomitant]
     Active Substance: ACETAMINOPHEN
  6. ALENDRONATE 70MG [Suspect]
     Active Substance: ALENDRONATE SODIUM
     Indication: OSTEOPOROSIS
     Dosage: ?          QUANTITY:1 DF DOSAGE FORM;?
     Route: 048
     Dates: start: 20210808, end: 20210809
  7. ALLOPURINOL. [Concomitant]
     Active Substance: ALLOPURINOL
  8. PREDNOISNE ACETATE [Concomitant]
  9. VITAMIN B12 [Concomitant]
     Active Substance: CYANOCOBALAMIN

REACTIONS (8)
  - Myalgia [None]
  - Headache [None]
  - Bedridden [None]
  - Dizziness [None]
  - Vision blurred [None]
  - Thrombosis [None]
  - Malaise [None]
  - Pain [None]

NARRATIVE: CASE EVENT DATE: 20210808
